FAERS Safety Report 25213711 (Version 1)
Quarter: 2025Q2

REPORT INFORMATION
  Report Type: Spontaneous
  Country: JP (occurrence: JP)
  Receive Date: 20250418
  Receipt Date: 20250418
  Transmission Date: 20250716
  Serious: Yes (Other)
  Sender: PFIZER
  Company Number: JP-PFIZER INC-202500077069

PATIENT

DRUGS (1)
  1. AMPICILLIN SODIUM\SULBACTAM SODIUM [Suspect]
     Active Substance: AMPICILLIN SODIUM\SULBACTAM SODIUM

REACTIONS (2)
  - Drug reaction with eosinophilia and systemic symptoms [Unknown]
  - Haemophagocytic lymphohistiocytosis [Unknown]
